FAERS Safety Report 7545374-8 (Version None)
Quarter: 2011Q2

REPORT INFORMATION
  Report Type: 
  Country: None (occurrence: None)
  Receive Date: 20110613
  Receipt Date: 20110613
  Transmission Date: 20111010
  Serious: Yes (Hospitalization)
  Sender: FDA-Public Use
  Company Number: None

PATIENT
  Age: 21 Year
  Sex: Male
  Weight: 68.04 kg

DRUGS (1)
  1. CEFTRIAXONE [Suspect]
     Indication: ACUTE TONSILLITIS
     Dosage: 1 GM Q24H IV X1 DOSE
     Route: 042
     Dates: start: 20110519, end: 20110519

REACTIONS (1)
  - RASH GENERALISED [None]
